FAERS Safety Report 18550498 (Version 4)
Quarter: 2023Q1

REPORT INFORMATION
  Report Type: Spontaneous
  Country: US (occurrence: US)
  Receive Date: 20201126
  Receipt Date: 20230109
  Transmission Date: 20230417
  Serious: Yes (Other)
  Sender: FDA-Public Use
  Company Number: US-PFIZER INC-2020326172

PATIENT
  Age: 53 Year
  Sex: Female
  Weight: 98.43 kg

DRUGS (6)
  1. XELJANZ [Suspect]
     Active Substance: TOFACITINIB CITRATE
     Indication: Rheumatoid arthritis
     Dosage: 5 MG, 2X/DAY ,[ONCE IN THE AM AND ONCE IN THE PM]
     Route: 048
  2. XELJANZ [Suspect]
     Active Substance: TOFACITINIB CITRATE
     Indication: Spinal osteoarthritis
  3. XELJANZ [Suspect]
     Active Substance: TOFACITINIB CITRATE
     Indication: Stenosis
  4. XELJANZ [Suspect]
     Active Substance: TOFACITINIB CITRATE
     Indication: Ankylosing spondylitis
  5. FOLIC ACID [Concomitant]
     Active Substance: FOLIC ACID
     Dosage: UNK
  6. FISH OIL [Concomitant]
     Active Substance: FISH OIL
     Dosage: UNK

REACTIONS (13)
  - Foot fracture [Unknown]
  - Intentional product misuse [Unknown]
  - Pain [Unknown]
  - Pain in extremity [Unknown]
  - Gait disturbance [Unknown]
  - Foot deformity [Unknown]
  - Withdrawal syndrome [Unknown]
  - Spondylitis [Unknown]
  - Memory impairment [Unknown]
  - Blood cholesterol increased [Unknown]
  - Alopecia [Unknown]
  - Rash [Unknown]
  - Impaired healing [Unknown]
